FAERS Safety Report 19777647 (Version 1)
Quarter: 2021Q3

REPORT INFORMATION
  Report Type: Spontaneous
  Country: US (occurrence: US)
  Receive Date: 20210902
  Receipt Date: 20210902
  Transmission Date: 20211014
  Serious: No
  Sender: FDA-Public Use
  Company Number: US-SA-2021SA287306

PATIENT
  Age: 31 Year
  Sex: Female

DRUGS (7)
  1. MOMETASONE FUROATE. [Concomitant]
     Active Substance: MOMETASONE FUROATE
     Indication: PRURITUS
  2. OXYCODONE HYDROCHLORIDE. [Concomitant]
     Active Substance: OXYCODONE HYDROCHLORIDE
     Dosage: 10MG
  3. DUPIXENT [Suspect]
     Active Substance: DUPILUMAB
     Indication: DERMATITIS ATOPIC
     Dosage: 300 MG, QOW
     Route: 058
     Dates: start: 20210530
  4. MUPIROCIN. [Concomitant]
     Active Substance: MUPIROCIN
  5. TRIAMCINOLONE ACETONIDE. [Concomitant]
     Active Substance: TRIAMCINOLONE ACETONIDE
     Indication: DERMATITIS ATOPIC
     Dosage: 10MG
  6. DUPIXENT [Suspect]
     Active Substance: DUPILUMAB
     Indication: ILLNESS
  7. CLOBETASOL [Concomitant]
     Active Substance: CLOBETASOL

REACTIONS (6)
  - Arthralgia [Unknown]
  - Pruritus [Unknown]
  - Product dose omission issue [Unknown]
  - Eye irritation [Unknown]
  - Rebound eczema [Unknown]
  - Product storage error [Unknown]

NARRATIVE: CASE EVENT DATE: 2021
